FAERS Safety Report 8743702 (Version 2)
Quarter: 2012Q4

REPORT INFORMATION
  Report Type: Report from Study
  Country: DE (occurrence: DE)
  Receive Date: 20120824
  Receipt Date: 20121023
  Transmission Date: 20130627
  Serious: No
  Sender: FDA-Public Use
  Company Number: DE-ABBOTT-12P-062-0972402-00

PATIENT
  Sex: Male
  Weight: 68 kg

DRUGS (4)
  1. HUMIRA [Suspect]
     Indication: ANKYLOSING SPONDYLITIS
     Route: 058
     Dates: start: 200907, end: 201001
  2. TRAMADOLOR [Concomitant]
     Indication: ANALGESIC THERAPY
     Dosage: 150 mg daily
  3. ARCOXIA [Concomitant]
     Indication: PRODUCT USED FOR UNKNOWN INDICATION
     Dosage: 90 mg daily
  4. INFLIXIMAB [Concomitant]
     Dates: start: 201108

REACTIONS (1)
  - Drug ineffective [Unknown]
